FAERS Safety Report 17906682 (Version 1)
Quarter: 2020Q2

REPORT INFORMATION
  Report Type: Spontaneous
  Country: US (occurrence: US)
  Receive Date: 20200616
  Receipt Date: 20200616
  Transmission Date: 20200714
  Serious: Yes (Disabling)
  Sender: FDA-Public Use
  Company Number: None

PATIENT
  Age: 8 Year
  Sex: Male

DRUGS (1)
  1. MIRALAX [Suspect]
     Active Substance: POLYETHYLENE GLYCOL 3350
     Indication: CONSTIPATION
     Dates: start: 20150101, end: 20180601

REACTIONS (4)
  - Attention deficit hyperactivity disorder [None]
  - Depression [None]
  - Anger [None]
  - Psychotic disorder [None]

NARRATIVE: CASE EVENT DATE: 20200101
